FAERS Safety Report 15434920 (Version 1)
Quarter: 2018Q3

REPORT INFORMATION
  Report Type: Report from Study
  Country: US (occurrence: US)
  Receive Date: 20180927
  Receipt Date: 20180927
  Transmission Date: 20181010
  Serious: Yes (Other)
  Sender: FDA-Public Use
  Company Number: US-JNJFOC-20180932410

PATIENT
  Age: 74 Year
  Sex: Male

DRUGS (23)
  1. ALLOPURINOL. [Concomitant]
     Active Substance: ALLOPURINOL
  2. BISOPROLOL [Concomitant]
     Active Substance: BISOPROLOL
  3. DIPHENHYDRAMINE. [Concomitant]
     Active Substance: DIPHENHYDRAMINE
  4. METFORMIN [Concomitant]
     Active Substance: METFORMIN HYDROCHLORIDE
  5. IMBRUVICA [Suspect]
     Active Substance: IBRUTINIB
     Indication: CHRONIC LYMPHOCYTIC LEUKAEMIA
     Route: 048
     Dates: start: 20180731
  6. BENAZEPRIL [Concomitant]
     Active Substance: BENAZEPRIL HYDROCHLORIDE
  7. FAMOTIDINE. [Concomitant]
     Active Substance: FAMOTIDINE
  8. WARFARIN [Concomitant]
     Active Substance: WARFARIN
  9. MONTELUKAST [Concomitant]
     Active Substance: MONTELUKAST SODIUM
  10. LACTOBACILLUS [Concomitant]
     Active Substance: LACTOBACILLUS ACIDOPHILUS
  11. SYNTHROID [Concomitant]
     Active Substance: LEVOTHYROXINE SODIUM
  12. CLARITIN [Concomitant]
     Active Substance: LORATADINE
  13. MIRALAX [Concomitant]
     Active Substance: POLYETHYLENE GLYCOL 3350
  14. FLUTICASONE. [Concomitant]
     Active Substance: FLUTICASONE
  15. TOLTERODINE [Concomitant]
     Active Substance: TOLTERODINE
  16. CARTIA [Concomitant]
  17. DIGOXIN. [Concomitant]
     Active Substance: DIGOXIN
  18. FISH OIL W/TOCOPHEROL [Concomitant]
  19. LOVASTATIN. [Concomitant]
     Active Substance: LOVASTATIN
  20. CHOLESTYRAMINE. [Concomitant]
     Active Substance: CHOLESTYRAMINE
  21. VENTOLIN [Concomitant]
     Active Substance: ALBUTEROL SULFATE
  22. METHYLPREDNISOLONE. [Concomitant]
     Active Substance: METHYLPREDNISOLONE
  23. FUROSEMIDE. [Concomitant]
     Active Substance: FUROSEMIDE

REACTIONS (2)
  - Hypersensitivity [Unknown]
  - Eye haemorrhage [Not Recovered/Not Resolved]

NARRATIVE: CASE EVENT DATE: 20180916
